FAERS Safety Report 7288038-0 (Version None)
Quarter: 2011Q1

REPORT INFORMATION
  Report Type: 
  Country: None (occurrence: None)
  Receive Date: 20110211
  Receipt Date: 20110201
  Transmission Date: 20110831
  Serious: Yes (Other)
  Sender: FDA-Public Use
  Company Number: PHHY2009CA43360

PATIENT
  Sex: Male

DRUGS (5)
  1. ANTIBIOTICS [Concomitant]
     Route: 042
  2. SANDOSTATIN LAR [Suspect]
     Dosage: 30 MG, QMO
     Route: 030
  3. SANDOSTATIN LAR [Suspect]
     Indication: METASTATIC CARCINOID TUMOUR
     Dosage: 30 MG, QMO
     Route: 030
     Dates: start: 20080903
  4. SANDOSTATIN LAR [Suspect]
     Dosage: 20 MG EVERY 4 WEEKS
     Route: 030
  5. SANDOSTATIN LAR [Suspect]
     Dosage: 20 MG, QMO
     Route: 030

REACTIONS (15)
  - WOUND SECRETION [None]
  - DRUG INEFFECTIVE [None]
  - LOCALISED INTRAABDOMINAL FLUID COLLECTION [None]
  - WEIGHT DECREASED [None]
  - DYSPNOEA [None]
  - MUSCULOSKELETAL STIFFNESS [None]
  - DIARRHOEA [None]
  - WHITE BLOOD CELL COUNT DECREASED [None]
  - FLUSHING [None]
  - LYMPHOEDEMA [None]
  - WOUND [None]
  - OEDEMA PERIPHERAL [None]
  - MUSCLE TIGHTNESS [None]
  - ARTHRALGIA [None]
  - ABDOMINAL DISTENSION [None]
